FAERS Safety Report 15334579 (Version 3)
Quarter: 2018Q3

REPORT INFORMATION
  Report Type: Report from Study
  Country: US (occurrence: US)
  Receive Date: 20180830
  Receipt Date: 20180911
  Transmission Date: 20181010
  Serious: Yes (Hospitalization)
  Sender: FDA-Public Use
  Company Number: US-ROCHE-2175225

PATIENT
  Age: 29 Year
  Sex: Female
  Weight: 79 kg

DRUGS (29)
  1. METHYLPREDNISOLONE. [Suspect]
     Active Substance: METHYLPREDNISOLONE
     Indication: SYSTEMIC LUPUS ERYTHEMATOSUS
     Dosage: AT 10:50
     Route: 042
     Dates: start: 20170411, end: 20170411
  2. FERROUS SULFATE. [Concomitant]
     Active Substance: FERROUS SULFATE
     Indication: ANAEMIA
     Route: 048
     Dates: start: 20170327
  3. CARVEDILOL. [Concomitant]
     Active Substance: CARVEDILOL
     Indication: HYPERTENSION
     Route: 048
  4. METHYLPREDNISOLONE. [Suspect]
     Active Substance: METHYLPREDNISOLONE
     Dosage: AT 09:50
     Route: 042
     Dates: start: 20170427, end: 20170427
  5. DIPHENHYDRAMINE. [Concomitant]
     Active Substance: DIPHENHYDRAMINE
     Dosage: GIVEN 60 MINUTES +?15 MINUTES) PRIOR TO RITUXIMAB AT 10:20
     Route: 065
     Dates: start: 20170411
  6. SERTRALINE [Concomitant]
     Active Substance: SERTRALINE HYDROCHLORIDE
     Indication: DEPRESSION
     Route: 065
     Dates: start: 20171129, end: 20180627
  7. METHYLPREDNISOLONE. [Suspect]
     Active Substance: METHYLPREDNISOLONE
     Route: 042
     Dates: start: 20170325, end: 20170325
  8. POTASSIUM CHLORIDE. [Concomitant]
     Active Substance: POTASSIUM CHLORIDE
     Route: 048
     Dates: start: 20170427
  9. POTASSIUM CHLORIDE. [Concomitant]
     Active Substance: POTASSIUM CHLORIDE
     Indication: HYPOKALAEMIA
     Route: 048
     Dates: start: 2014
  10. ACETAMINOPHEN. [Concomitant]
     Active Substance: ACETAMINOPHEN
     Dosage: GIVEN 60 MINUTES +?15 MINUTES) PRIOR TO RITUXIMAB AT 10:20
     Route: 065
     Dates: start: 20170411
  11. ACETAMINOPHEN. [Concomitant]
     Active Substance: ACETAMINOPHEN
     Dosage: GIVEN 60 MINUTES +?15 MINUTES) PRIOR TO RITUXIMAB AT 9:37
     Route: 065
     Dates: start: 20170427
  12. BUMETANIDE. [Concomitant]
     Active Substance: BUMETANIDE
     Indication: LUPUS NEPHRITIS
     Route: 048
     Dates: start: 2014
  13. SPIRONOLACTONE. [Concomitant]
     Active Substance: SPIRONOLACTONE
     Indication: FLUID RETENTION
     Route: 048
     Dates: start: 2014
  14. SPIRONOLACTONE. [Concomitant]
     Active Substance: SPIRONOLACTONE
     Indication: HYPERTENSION
  15. HYDROXYCHLOROQUINE [Concomitant]
     Active Substance: HYDROXYCHLOROQUINE
     Route: 048
     Dates: start: 20170404, end: 20180627
  16. RITUXIMAB. [Suspect]
     Active Substance: RITUXIMAB
     Dosage: FROM 10:39 TO 14:30 100 MG/HOUR TO 400 MG/HR
     Route: 042
     Dates: start: 20170427
  17. CYCLOPHOSPHAMIDE. [Suspect]
     Active Substance: CYCLOPHOSPHAMIDE
     Route: 042
     Dates: start: 20170427
  18. PREDNISONE. [Suspect]
     Active Substance: PREDNISONE
     Indication: SYSTEMIC LUPUS ERYTHEMATOSUS
     Dosage: 50, 40, 35, 30, 25, 20, 17.5, 15, 12.5, 10, 80 MG   TAPER TO 10 MG/DAY BY WEEK 12
     Route: 048
     Dates: start: 20170325
  19. RITUXIMAB. [Suspect]
     Active Substance: RITUXIMAB
     Indication: SYSTEMIC LUPUS ERYTHEMATOSUS
     Dosage: 50, 100, 150, 200, 250, 300, 350, 400 MG/HR  FROM 11:20 TO 15:20
     Route: 042
     Dates: start: 20170411, end: 20170426
  20. CYCLOPHOSPHAMIDE. [Suspect]
     Active Substance: CYCLOPHOSPHAMIDE
     Indication: SYSTEMIC LUPUS ERYTHEMATOSUS
     Route: 042
     Dates: start: 20170411
  21. BELIMUMAB [Concomitant]
     Active Substance: BELIMUMAB
  22. DIPHENHYDRAMINE. [Concomitant]
     Active Substance: DIPHENHYDRAMINE
     Dosage: GIVEN 60 MINUTES +?15 MINUTES) PRIOR TO RITUXIMAB AT 9:37
     Route: 065
     Dates: start: 20170427
  23. ACETAMINOPHEN. [Concomitant]
     Active Substance: ACETAMINOPHEN
     Indication: BACK PAIN
     Dosage: 20/1300 MG
     Route: 048
     Dates: start: 20170327
  24. SUMATRIPTAN. [Concomitant]
     Active Substance: SUMATRIPTAN
     Indication: MIGRAINE
     Dosage: AS NEEDED
     Route: 048
     Dates: start: 2015
  25. HYDROXYCHLOROQUINE [Concomitant]
     Active Substance: HYDROXYCHLOROQUINE
     Indication: SYSTEMIC LUPUS ERYTHEMATOSUS
     Route: 048
     Dates: start: 20121003, end: 20170411
  26. PREDNISONE. [Suspect]
     Active Substance: PREDNISONE
     Route: 048
     Dates: start: 20171024
  27. DIAZEPAM. [Concomitant]
     Active Substance: DIAZEPAM
     Indication: ANXIETY
     Dosage: AS NEEDED
     Route: 048
     Dates: start: 2014
  28. ERGOCALCIFEROL. [Concomitant]
     Active Substance: ERGOCALCIFEROL
     Indication: VITAMIN D DEFICIENCY
     Route: 048
     Dates: start: 20170327
  29. SUMATRIPTAN. [Concomitant]
     Active Substance: SUMATRIPTAN
     Indication: HEADACHE

REACTIONS (3)
  - Haematemesis [Recovered/Resolved]
  - Chest pain [Recovered/Resolved]
  - Haemoptysis [Recovered/Resolved]

NARRATIVE: CASE EVENT DATE: 20180705
